FAERS Safety Report 8442545 (Version 3)
Quarter: 2013Q2

REPORT INFORMATION
  Report Type: Spontaneous
  Country: GB (occurrence: None)
  Receive Date: 20120223
  Receipt Date: 20130528
  Transmission Date: 20140414
  Serious: Yes (Hospitalization)
  Sender: FDA-Public Use
  Company Number: GB-024348

PATIENT
  Age: 62 Year
  Sex: Male
  Weight: 60.5 kg

DRUGS (1)
  1. CHLORAMBUCIL (CHLORAMBUCIL) (UNKNOWN) [Suspect]
     Indication: CHRONIC LYMPHOCYTIC LEUKAEMIA
     Dosage: 10 MG/M2 AT DAYS 1-7 EVERY 28 DAYS
     Route: 048
     Dates: start: 20110308

REACTIONS (2)
  - EMPYEMA [None]
  - DISEASE RECURRENCE [None]
